FAERS Safety Report 4718517-9 (Version None)
Quarter: 2005Q3

REPORT INFORMATION
  Report Type: 
  Country: None (occurrence: None)
  Receive Date: 20050719
  Receipt Date: 20050505
  Transmission Date: 20060218
  Serious: Yes (Other)
  Sender: FDA-Public Use
  Company Number: 2005067331

PATIENT
  Age: 55 Year
  Sex: Male

DRUGS (2)
  1. CELEBREX [Suspect]
     Indication: BACK PAIN
     Dosage: UNK (200 MG, UNKNOWN), ORAL
     Route: 048
  2. CELEBREX [Suspect]
     Indication: RADICULOPATHY
     Dosage: UNK (200 MG, UNKNOWN), ORAL
     Route: 048

REACTIONS (2)
  - SCAR [None]
  - STEVENS-JOHNSON SYNDROME [None]
